FAERS Safety Report 8264176-0 (Version None)
Quarter: 2012Q2

REPORT INFORMATION
  Report Type: 
  Country: None (occurrence: None)
  Receive Date: 20120403
  Receipt Date: 20120321
  Transmission Date: 20120825
  Serious: Yes (Death, Hospitalization)
  Sender: FDA-Public Use
  Company Number: 2009AL001692

PATIENT
  Sex: Male

DRUGS (6)
  1. DIGOXIN [Suspect]
     Indication: CARDIAC DISORDER
     Dosage: 250 MCG;QD;PO
     Route: 048
     Dates: start: 20020703, end: 20090428
  2. INSULIN [Concomitant]
  3. HYDROCODONE BITARTRATE [Concomitant]
  4. COUMADIN [Concomitant]
  5. SULFASALAZINE [Concomitant]
  6. VERAPAMIL [Concomitant]

REACTIONS (4)
  - PAIN [None]
  - EMOTIONAL DISORDER [None]
  - ECONOMIC PROBLEM [None]
  - INJURY [None]
